FAERS Safety Report 10600207 (Version 2)
Quarter: 2015Q1

REPORT INFORMATION
  Report Type: Spontaneous
  Country: US (occurrence: US)
  Receive Date: 20141122
  Receipt Date: 20150113
  Transmission Date: 20150720
  Serious: No
  Sender: FDA-Public Use
  Company Number: US-009507513-1411USA009594

PATIENT
  Age: 19 Year
  Sex: Female
  Weight: 80.27 kg

DRUGS (2)
  1. NEXPLANON [Suspect]
     Active Substance: ETONOGESTREL
     Dosage: 1 UNK, UNK
     Route: 058
     Dates: start: 20141126
  2. NEXPLANON [Suspect]
     Active Substance: ETONOGESTREL
     Indication: CONTRACEPTION
     Dosage: DOSE/FREQUENCY: 68MG/ ONE ROD INSERTED EVERY THREE YEARS
     Route: 058
     Dates: start: 20140519, end: 20141126

REACTIONS (3)
  - Product quality issue [Unknown]
  - No adverse event [Unknown]
  - Device breakage [Recovered/Resolved]

NARRATIVE: CASE EVENT DATE: 20141112
